FAERS Safety Report 5452118-2 (Version None)
Quarter: 2007Q3

REPORT INFORMATION
  Report Type: 
  Country: None (occurrence: None)
  Receive Date: 20070912
  Receipt Date: 20070828
  Transmission Date: 20080115
  Serious: Yes (Other)
  Sender: FDA-Public Use
  Company Number: 07-001784

PATIENT
  Sex: Female

DRUGS (1)
  1. FEMCON FE(NORETHINDRONE, ETHINYL ESTRADIOL) CHEWABLE, 0.4MG/35MCG [Suspect]
     Dosage: 0.4MG/35 MCG, ORAL
     Route: 048

REACTIONS (4)
  - BLOOD FOLLICLE STIMULATING HORMONE INCREASED [None]
  - DRUG INEFFECTIVE [None]
  - ENDOMETRIAL HYPERTROPHY [None]
  - OVARIAN CYST [None]
